FAERS Safety Report 4694037-5 (Version None)
Quarter: 2005Q2

REPORT INFORMATION
  Report Type: 
  Country: None (occurrence: None)
  Receive Date: 20050616
  Receipt Date: 20050608
  Transmission Date: 20051028
  Serious: Yes (Death, Life-Threatening)
  Sender: FDA-Public Use
  Company Number: 200511151BWH

PATIENT
  Age: 59 Year
  Sex: Male

DRUGS (4)
  1. DTIC-DOME [Suspect]
     Indication: MALIGNANT MELANOMA
     Dates: start: 20030101
  2. MDX -010 (BMS734016) (UNCODEABLE ^INVESTIGATIONAL  DRUG^) [Concomitant]
  3. CANCERVAX [Concomitant]
  4. GM-CSF [Concomitant]

REACTIONS (38)
  - ACTIVATED PARTIAL THROMBOPLASTIN TIME PROLONGED [None]
  - ALANINE AMINOTRANSFERASE INCREASED [None]
  - ASPARTATE AMINOTRANSFERASE INCREASED [None]
  - ASTHENIA [None]
  - BAND NEUTROPHIL PERCENTAGE INCREASED [None]
  - BLOOD BICARBONATE DECREASED [None]
  - BLOOD CREATINE PHOSPHOKINASE MB INCREASED [None]
  - BLOOD CREATININE INCREASED [None]
  - BLOOD UREA INCREASED [None]
  - CARDIAC FAILURE [None]
  - CARDIO-RESPIRATORY ARREST [None]
  - CHILLS [None]
  - COAGULOPATHY [None]
  - DECREASED APPETITE [None]
  - DEPRESSED LEVEL OF CONSCIOUSNESS [None]
  - DIARRHOEA [None]
  - DIPLOPIA [None]
  - DRUG TOXICITY [None]
  - FATIGUE [None]
  - GENERAL PHYSICAL HEALTH DETERIORATION [None]
  - GENERALISED OEDEMA [None]
  - HAEMATOCRIT DECREASED [None]
  - HEPATIC NECROSIS [None]
  - HYPOTENSION [None]
  - INTERNATIONAL NORMALISED RATIO INCREASED [None]
  - MULTI-ORGAN FAILURE [None]
  - MYOCARDIAL ISCHAEMIA [None]
  - NAUSEA [None]
  - NIGHT SWEATS [None]
  - PROTHROMBIN TIME PROLONGED [None]
  - PUPIL FIXED [None]
  - PYREXIA [None]
  - SEPTIC SHOCK [None]
  - SINUS TACHYCARDIA [None]
  - TROPONIN INCREASED [None]
  - VENTRICULAR HYPOKINESIA [None]
  - WEIGHT DECREASED [None]
  - WHITE BLOOD CELL COUNT INCREASED [None]
